FAERS Safety Report 7501525-2 (Version None)
Quarter: 2011Q2

REPORT INFORMATION
  Report Type: 
  Country: None (occurrence: None)
  Receive Date: 20110524
  Receipt Date: 20110513
  Transmission Date: 20111010
  Serious: Yes (Other)
  Sender: FDA-Public Use
  Company Number: PHHY2011NZ27246

PATIENT
  Sex: Male

DRUGS (8)
  1. MYCOPHENOLATE MOFETIL [Concomitant]
  2. FOSAMAX [Concomitant]
  3. CITALOPRAM HYDROBROMIDE [Concomitant]
  4. CLOZARIL [Concomitant]
  5. METOPROLOL [Concomitant]
  6. NEORAL [Suspect]
     Indication: TRANSPLANT
     Dosage: 75 MG, BID
     Route: 048
     Dates: start: 20061101
  7. ASPIRIN [Concomitant]
  8. PREDNISONE [Concomitant]

REACTIONS (1)
  - GINGIVAL HYPOPLASIA [None]
